FAERS Safety Report 18251654 (Version 4)
Quarter: 2022Q4

REPORT INFORMATION
  Report Type: Spontaneous
  Country: US (occurrence: None)
  Receive Date: 20200910
  Receipt Date: 20221116
  Transmission Date: 20230113
  Serious: Yes (Other)
  Sender: FDA-Public Use
  Company Number: 2020SF12680

PATIENT
  Age: 54 Year
  Sex: Female
  Weight: 51.7 kg

DRUGS (74)
  1. NEXIUM [Suspect]
     Active Substance: ESOMEPRAZOLE MAGNESIUM
     Indication: Gastrooesophageal reflux disease
     Route: 048
     Dates: start: 200401, end: 201812
  2. NEXIUM [Suspect]
     Active Substance: ESOMEPRAZOLE MAGNESIUM
     Indication: Gastrooesophageal reflux disease
     Route: 048
     Dates: start: 2004, end: 2018
  3. PRILOSEC [Suspect]
     Active Substance: OMEPRAZOLE MAGNESIUM
     Indication: Gastrooesophageal reflux disease
     Route: 048
     Dates: start: 200401, end: 201812
  4. PRILOSEC [Suspect]
     Active Substance: OMEPRAZOLE MAGNESIUM
     Indication: Gastrooesophageal reflux disease
     Route: 048
     Dates: start: 2004, end: 2018
  5. PRILOSEC [Suspect]
     Active Substance: OMEPRAZOLE MAGNESIUM
     Indication: Gastrooesophageal reflux disease
     Dosage: GENERIC
     Route: 065
     Dates: start: 2009, end: 2019
  6. PRILOSEC [Suspect]
     Active Substance: OMEPRAZOLE MAGNESIUM
     Indication: Gastrooesophageal reflux disease
     Route: 048
     Dates: start: 20180609
  7. PREVACID [Suspect]
     Active Substance: LANSOPRAZOLE
     Indication: Gastrooesophageal reflux disease
     Route: 065
     Dates: start: 200401, end: 201812
  8. PREVACID [Suspect]
     Active Substance: LANSOPRAZOLE
     Indication: Gastrooesophageal reflux disease
     Route: 065
     Dates: start: 2004, end: 2018
  9. PROTONIX [Suspect]
     Active Substance: PANTOPRAZOLE SODIUM
     Indication: Gastrooesophageal reflux disease
     Route: 065
     Dates: start: 2019
  10. PROTONIX [Suspect]
     Active Substance: PANTOPRAZOLE SODIUM
     Indication: Gastrooesophageal reflux disease
     Dosage: GENERIC
     Route: 065
     Dates: start: 2019
  11. PLAVIX [Concomitant]
     Active Substance: CLOPIDOGREL BISULFATE
     Indication: Anticoagulant therapy
     Dates: start: 2018
  12. ASPIRIN [Concomitant]
     Active Substance: ASPIRIN
     Indication: Pain
     Dosage: DAILY
  13. VITAMIN D [Concomitant]
     Active Substance: VITAMIN D NOS
     Indication: Hypovitaminosis
     Dosage: DAILY
  14. FAMOTIDINE [Concomitant]
     Active Substance: FAMOTIDINE
     Dates: start: 2019
  15. DIAZEPAM [Concomitant]
     Active Substance: DIAZEPAM
  16. ESCITALOPRAM [Concomitant]
     Active Substance: ESCITALOPRAM OXALATE
  17. PREDNISONE [Concomitant]
     Active Substance: PREDNISONE
  18. LEVOFLOXACIN [Concomitant]
     Active Substance: LEVOFLOXACIN
  19. HYDRALAZINE [Concomitant]
     Active Substance: HYDRALAZINE HYDROCHLORIDE
  20. HYDROCODONE [Concomitant]
     Active Substance: HYDROCODONE
  21. ABILIFY [Concomitant]
     Active Substance: ARIPIPRAZOLE
  22. ADVAIR DISKUS [Concomitant]
     Active Substance: FLUTICASONE PROPIONATE\SALMETEROL XINAFOATE
  23. LASIX [Concomitant]
     Active Substance: FUROSEMIDE
  24. FLONASE [Concomitant]
     Active Substance: FLUTICASONE PROPIONATE
  25. KLOR-CON [Concomitant]
     Active Substance: POTASSIUM CHLORIDE
  26. LOMOTIL [Concomitant]
     Active Substance: ATROPINE SULFATE\DIPHENOXYLATE HYDROCHLORIDE
  27. NAMENDA [Concomitant]
     Active Substance: MEMANTINE HYDROCHLORIDE
  28. PRAVACHOL [Concomitant]
     Active Substance: PRAVASTATIN SODIUM
  29. PROAIR HFA [Concomitant]
     Active Substance: ALBUTEROL SULFATE
  30. CARBOXYMETHYLCELLULOSE SODIUM\GLYCERIN [Concomitant]
     Active Substance: CARBOXYMETHYLCELLULOSE SODIUM\GLYCERIN
  31. RISPERDAL [Concomitant]
     Active Substance: RISPERIDONE
  32. TRADJENTA [Concomitant]
     Active Substance: LINAGLIPTIN
  33. AMLODIPINE [Concomitant]
     Active Substance: AMLODIPINE BESYLATE
  34. BUPROPION HYDROCHLORIDE [Concomitant]
     Active Substance: BUPROPION HYDROCHLORIDE
  35. CARVEDILOL [Concomitant]
     Active Substance: CARVEDILOL
  36. CETIRIZINE [Concomitant]
     Active Substance: CETIRIZINE HYDROCHLORIDE
  37. SODIUM BICARBONATE [Concomitant]
     Active Substance: SODIUM BICARBONATE
  38. GABAPENTIN [Concomitant]
     Active Substance: GABAPENTIN
  39. PROMETHAZINE [Concomitant]
     Active Substance: PROMETHAZINE HYDROCHLORIDE
  40. ZOLPIDEM [Concomitant]
     Active Substance: ZOLPIDEM TARTRATE
  41. MONTELUKAST [Concomitant]
     Active Substance: MONTELUKAST SODIUM
  42. PENICILLIN [Concomitant]
     Active Substance: PENICILLIN
  43. CEON [Concomitant]
  44. ROPINIROLE [Concomitant]
     Active Substance: ROPINIROLE
  45. RANITIDINE [Concomitant]
     Active Substance: RANITIDINE
  46. OXYBUTYNIN CHLORIDE [Concomitant]
     Active Substance: OXYBUTYNIN CHLORIDE
  47. MEDROL [Concomitant]
     Active Substance: METHYLPREDNISOLONE
  48. SENNA [Concomitant]
     Active Substance: SENNA LEAF\SENNOSIDES\SENNOSIDES A AND B
  49. IPRATROPIUM BROMIDE [Concomitant]
     Active Substance: IPRATROPIUM BROMIDE
  50. ACETAMINOPHEN\HYDROCODONE [Concomitant]
     Active Substance: ACETAMINOPHEN\HYDROCODONE
  51. NIFEDIPINE [Concomitant]
     Active Substance: NIFEDIPINE
  52. SODIUM CHLORIDE [Concomitant]
     Active Substance: SODIUM CHLORIDE
  53. CLONIDINE HYDROCHLORIDE [Concomitant]
     Active Substance: CLONIDINE HYDROCHLORIDE
  54. FENTANYL [Concomitant]
     Active Substance: FENTANYL
  55. VERSED [Concomitant]
     Active Substance: MIDAZOLAM HYDROCHLORIDE
  56. DEXAMETHASONE [Concomitant]
     Active Substance: DEXAMETHASONE
  57. ANCEF [Concomitant]
     Active Substance: CEFAZOLIN SODIUM
  58. MEGESTROL [Concomitant]
     Active Substance: MEGESTROL
  59. HYDROMORPHONE [Concomitant]
     Active Substance: HYDROMORPHONE
  60. CHLORHEXIDINE [Concomitant]
     Active Substance: CHLORHEXIDINE
  61. DEXTROSE [Concomitant]
     Active Substance: DEXTROSE
  62. HUMULIN NOS [Concomitant]
     Active Substance: INSULIN HUMAN
  63. OMNIPAQUE [Concomitant]
     Active Substance: IOHEXOL
  64. LIDOCAINE HYDROCHLORIDE [Concomitant]
     Active Substance: LIDOCAINE HYDROCHLORIDE
  65. TRIMETHOPRIM [Concomitant]
     Active Substance: TRIMETHOPRIM
  66. TRELEGY ELLIPTA [Concomitant]
     Active Substance: FLUTICASONE FUROATE\UMECLIDINIUM BROMIDE\VILANTEROL TRIFENATATE
  67. PULMICORT TURBUHALER [Concomitant]
     Active Substance: BUDESONIDE
  68. MAGNESIUM OXIDE [Concomitant]
     Active Substance: MAGNESIUM OXIDE
  69. MORPHINE SULFATE [Concomitant]
     Active Substance: MORPHINE SULFATE
  70. COZAAR [Concomitant]
     Active Substance: LOSARTAN POTASSIUM
  71. LOVENOX [Concomitant]
     Active Substance: ENOXAPARIN SODIUM
  72. LYRICA [Concomitant]
     Active Substance: PREGABALIN
  73. ZANAFLEX [Concomitant]
     Active Substance: TIZANIDINE HYDROCHLORIDE
  74. ULTRAM [Concomitant]
     Active Substance: TRAMADOL HYDROCHLORIDE

REACTIONS (4)
  - Chronic kidney disease [Not Recovered/Not Resolved]
  - Acute kidney injury [Not Recovered/Not Resolved]
  - Renal failure [Unknown]
  - Renal tubular necrosis [Unknown]

NARRATIVE: CASE EVENT DATE: 20070101
